FAERS Safety Report 13438966 (Version 1)
Quarter: 2017Q2

REPORT INFORMATION
  Report Type: Spontaneous
  Country: US (occurrence: US)
  Receive Date: 20170413
  Receipt Date: 20170413
  Transmission Date: 20170830
  Serious: No
  Sender: FDA-Public Use
  Company Number: US-ROCHE-704854

PATIENT
  Age: 8 Month
  Sex: Female

DRUGS (7)
  1. RIFAMPIN. [Concomitant]
     Active Substance: RIFAMPIN
     Indication: ANTIBIOTIC THERAPY
     Route: 065
  2. GENTAMICIN. [Concomitant]
     Active Substance: GENTAMICIN
     Indication: ANTIBIOTIC THERAPY
     Route: 065
  3. VANCOMYCIN [Concomitant]
     Active Substance: VANCOMYCIN
     Dosage: RESUMED
     Route: 042
  4. VANCOMYCIN [Concomitant]
     Active Substance: VANCOMYCIN
     Route: 042
  5. LINEZOLID. [Concomitant]
     Active Substance: LINEZOLID
     Route: 048
  6. CEFTRIAXONE SODIUM. [Suspect]
     Active Substance: CEFTRIAXONE SODIUM
     Indication: ANTIBIOTIC THERAPY
     Route: 065
  7. GENTAMICIN. [Concomitant]
     Active Substance: GENTAMICIN
     Dosage: ROUTE: INTRAVENOUS
     Route: 065

REACTIONS (5)
  - Pain [Unknown]
  - Rash [Unknown]
  - Neutropenia [Unknown]
  - Wound dehiscence [Unknown]
  - Joint range of motion decreased [Recovered/Resolved]
